FAERS Safety Report 8523760-7 (Version None)
Quarter: 2012Q3

REPORT INFORMATION
  Report Type: 
  Country: None (occurrence: None)
  Receive Date: 20120720
  Receipt Date: 20120713
  Transmission Date: 20120928
  Serious: Yes (Other)
  Sender: FDA-Public Use
  Company Number: JP-SANOFI-AVENTIS-2012SA050213

PATIENT
  Age: 73 Year
  Sex: Female
  Weight: 42 kg

DRUGS (13)
  1. LEUCOVORIN CALCIUM [Concomitant]
     Dates: start: 20110829, end: 20120409
  2. OXALIPLATIN [Suspect]
     Dosage: DOSE: 110 MG
     Route: 041
     Dates: start: 20111227, end: 20111227
  3. OXALIPLATIN [Suspect]
     Dosage: DOSE: 110 MG
     Route: 041
     Dates: start: 20120116, end: 20120116
  4. OXALIPLATIN [Suspect]
     Dosage: DOSE: 110 MG
     Route: 041
     Dates: start: 20111011, end: 20111011
  5. OXALIPLATIN [Suspect]
     Dosage: DOSE: 110 MG
     Route: 041
     Dates: start: 20111101, end: 20111101
  6. OXALIPLATIN [Suspect]
     Dosage: DOSE: 110 MG
     Route: 041
     Dates: start: 20120312, end: 20120312
  7. OXALIPLATIN [Suspect]
     Dosage: DOSE: 110 MG
     Route: 041
     Dates: start: 20111122, end: 20111122
  8. OXALIPLATIN [Suspect]
     Dosage: DOSE: 110 MG
     Route: 041
     Dates: start: 20120213, end: 20120213
  9. OXALIPLATIN [Suspect]
     Dosage: DOSE: 110 MG
     Route: 041
     Dates: start: 20120409, end: 20120409
  10. FLUOROURACIL [Concomitant]
     Dates: start: 20110829, end: 20120409
  11. OXALIPLATIN [Suspect]
     Indication: COLON CANCER
     Dosage: DOSE: 110 MG
     Route: 041
     Dates: start: 20110829, end: 20110829
  12. OXALIPLATIN [Suspect]
     Dosage: DOSE: 110 MG
     Route: 041
     Dates: start: 20110920, end: 20110920
  13. OXALIPLATIN [Suspect]
     Dosage: DOSE: 110 MG
     Route: 041
     Dates: start: 20111212, end: 20111212

REACTIONS (3)
  - NEUTROPHIL COUNT DECREASED [None]
  - PLATELET COUNT DECREASED [None]
  - DEMENTIA [None]
